FAERS Safety Report 9677404 (Version 1)
Quarter: 2013Q4

REPORT INFORMATION
  Report Type: Spontaneous
  Country: None (occurrence: None)
  Receive Date: 20131107
  Receipt Date: 20131107
  Transmission Date: 20140711
  Serious: Yes (Other)
  Sender: FDA-Public Use
  Company Number: None

PATIENT
  Age: 50 Year
  Sex: Male
  Weight: 72.58 kg

DRUGS (1)
  1. CIALIS [Suspect]
     Indication: BLOOD PRESSURE
     Dosage: 1
     Route: 048
     Dates: start: 20120815, end: 20120822

REACTIONS (2)
  - Tinnitus [None]
  - Drug ineffective [None]
